FAERS Safety Report 21130285 (Version 1)
Quarter: 2022Q3

REPORT INFORMATION
  Report Type: Spontaneous
  Country: US (occurrence: US)
  Receive Date: 20220726
  Receipt Date: 20220726
  Transmission Date: 20221027
  Serious: No
  Sender: FDA-Public Use
  Company Number: US-BIOGEN-2022BI01122412

PATIENT
  Sex: Female

DRUGS (1)
  1. TYSABRI [Suspect]
     Active Substance: NATALIZUMAB
     Indication: Multiple sclerosis
     Route: 050
     Dates: start: 20220209

REACTIONS (3)
  - Central nervous system lesion [Not Recovered/Not Resolved]
  - Accident at work [Unknown]
  - Stress [Unknown]

NARRATIVE: CASE EVENT DATE: 20220101
